FAERS Safety Report 17542140 (Version 2)
Quarter: 2020Q2

REPORT INFORMATION
  Report Type: Spontaneous
  Country: DE (occurrence: DE)
  Receive Date: 20200314
  Receipt Date: 20200508
  Transmission Date: 20200713
  Serious: Yes (Hospitalization, Disabling, Other)
  Sender: FDA-Public Use
  Company Number: DE-AMGEN-DEUSP2020040655

PATIENT
  Age: 74 Year
  Sex: Female
  Weight: 80 kg

DRUGS (1)
  1. PROLIA [Suspect]
     Active Substance: DENOSUMAB
     Indication: OSTEOPOROSIS
     Dosage: 60 MILLIGRAM
     Route: 058
     Dates: start: 20190424, end: 201904

REACTIONS (15)
  - C-reactive protein increased [Unknown]
  - Pain [Not Recovered/Not Resolved]
  - Pseudoradicular syndrome [Unknown]
  - Myalgia [Unknown]
  - Peripheral nerve injury [Not Recovered/Not Resolved]
  - Peripheral swelling [Not Recovered/Not Resolved]
  - Hypoaesthesia [Unknown]
  - Rotator cuff syndrome [Unknown]
  - Sensory loss [Unknown]
  - Vertebral foraminal stenosis [Unknown]
  - Demyelinating polyneuropathy [Unknown]
  - Spinal osteoarthritis [Unknown]
  - Dizziness [Unknown]
  - Dry mouth [Unknown]
  - Blood pressure abnormal [Unknown]

NARRATIVE: CASE EVENT DATE: 2019
